FAERS Safety Report 6212249-6 (Version None)
Quarter: 2009Q2

REPORT INFORMATION
  Report Type: 
  Country: None (occurrence: None)
  Receive Date: 20090529
  Receipt Date: 20090521
  Transmission Date: 20091009
  Serious: Yes (Death, Hospitalization)
  Sender: FDA-Public Use
  Company Number: 2009005975

PATIENT
  Age: 62 Year
  Sex: Female

DRUGS (1)
  1. TRISENOX [Suspect]
     Indication: BREAST CANCER METASTATIC
     Dosage: 1 IN 1 CYCLICAL, INTRAVENOUS DRIP
     Route: 041

REACTIONS (8)
  - CARCINOEMBRYONIC ANTIGEN INCREASED [None]
  - ELECTROLYTE IMBALANCE [None]
  - HEPATIC CANCER METASTATIC [None]
  - HYPERCALCAEMIA [None]
  - HYPOGLYCAEMIA [None]
  - MALIGNANT NEOPLASM PROGRESSION [None]
  - MENTAL STATUS CHANGES [None]
  - NO THERAPEUTIC RESPONSE [None]
